FAERS Safety Report 9356586 (Version 2)
Quarter: 2013Q3

REPORT INFORMATION
  Report Type: Spontaneous
  Country: US (occurrence: US)
  Receive Date: 20130619
  Receipt Date: 20130719
  Transmission Date: 20140515
  Serious: Yes (Hospitalization)
  Sender: FDA-Public Use
  Company Number: US-GILEAD-2013-0076610

PATIENT
  Age: 56 Year
  Sex: Female

DRUGS (2)
  1. LETAIRIS [Suspect]
     Indication: PULMONARY HYPERTENSION
     Dosage: 10 MG, QD
     Route: 048
     Dates: start: 20130404, end: 20130521
  2. LETAIRIS [Suspect]
     Indication: SCLERODERMA
     Dosage: 5 MG, UNK
     Route: 048

REACTIONS (4)
  - Pneumonia [Unknown]
  - Nasal congestion [Unknown]
  - Palpitations [Unknown]
  - Dyspnoea [Unknown]
